FAERS Safety Report 4374800-0 (Version None)
Quarter: 2004Q2

REPORT INFORMATION
  Report Type: 
  Country: None (occurrence: None)
  Receive Date: 20040604
  Receipt Date: 20040525
  Transmission Date: 20050107
  Serious: Yes (Hospitalization)
  Sender: FDA-Public Use
  Company Number: 2004035343

PATIENT
  Age: 51 Year
  Sex: Male

DRUGS (1)
  1. ROGAINE [Suspect]
     Dosage: TOPICAL
     Route: 061
     Dates: start: 20010101, end: 20020101

REACTIONS (8)
  - ALLERGIC GRANULOMATOUS ANGIITIS [None]
  - ANTINEUTROPHIL CYTOPLASMIC ANTIBODY POSITIVE [None]
  - APPLICATION SITE PRURITUS [None]
  - BLOOD IMMUNOGLOBULIN E INCREASED [None]
  - DISEASE RECURRENCE [None]
  - NERVE CONDUCTION STUDIES ABNORMAL [None]
  - PHARMACEUTICAL PRODUCT COMPLAINT [None]
  - WHITE BLOOD CELL COUNT INCREASED [None]
